FAERS Safety Report 13570130 (Version 2)
Quarter: 2017Q2

REPORT INFORMATION
  Report Type: Spontaneous
  Country: GB (occurrence: GB)
  Receive Date: 20170522
  Receipt Date: 20170622
  Transmission Date: 20170830
  Serious: Yes (Other)
  Sender: FDA-Public Use
  Company Number: GB-BAUSCH-BL-2017-016593

PATIENT
  Age: 75 Year
  Sex: Male

DRUGS (3)
  1. EPIRUBICIN [Suspect]
     Active Substance: EPIRUBICIN
     Indication: OESOPHAGEAL ADENOCARCINOMA STAGE III
     Dosage: EVERY CYCLE
     Route: 065
  2. CISPLATIN. [Suspect]
     Active Substance: CISPLATIN
     Indication: OESOPHAGEAL ADENOCARCINOMA STAGE III
     Dosage: EVERY CYCLE
     Route: 065
  3. FLUOROURACIL. [Suspect]
     Active Substance: FLUOROURACIL
     Indication: OESOPHAGEAL ADENOCARCINOMA STAGE III
     Dosage: EVERY CYCLE
     Route: 065

REACTIONS (2)
  - Acute kidney injury [Unknown]
  - Mucosal inflammation [Unknown]
